FAERS Safety Report 14064625 (Version 1)
Quarter: 2017Q4

REPORT INFORMATION
  Report Type: Spontaneous
  Country: RS (occurrence: RS)
  Receive Date: 20171009
  Receipt Date: 20171009
  Transmission Date: 20180321
  Serious: Yes (Other)
  Sender: FDA-Public Use
  Company Number: RS-IMPAX LABORATORIES, INC-2017-IPXL-02815

PATIENT
  Age: 29 Year
  Sex: Female

DRUGS (2)
  1. CHLOROQUINE PHOSPHATE. [Suspect]
     Active Substance: CHLOROQUINE PHOSPHATE
     Indication: PRODUCT USE IN UNAPPROVED INDICATION
  2. CHLOROQUINE PHOSPHATE. [Suspect]
     Active Substance: CHLOROQUINE PHOSPHATE
     Indication: SYSTEMIC LUPUS ERYTHEMATOSUS
     Dosage: UNK
     Route: 065

REACTIONS (4)
  - Pneumonitis [Unknown]
  - Systemic lupus erythematosus [Recovered/Resolved]
  - Thymus enlargement [Recovered/Resolved]
  - Drug ineffective for unapproved indication [Unknown]
